FAERS Safety Report 7331213-7 (Version None)
Quarter: 2011Q1

REPORT INFORMATION
  Report Type: 
  Country: None (occurrence: None)
  Receive Date: 20110304
  Receipt Date: 20110301
  Transmission Date: 20110831
  Serious: Yes (Other)
  Sender: FDA-Public Use
  Company Number: US-PFIZER INC-2011045093

PATIENT
  Sex: Female
  Weight: 80.726 kg

DRUGS (7)
  1. ALTACE [Concomitant]
     Indication: HYPERTENSION
     Dosage: UNK
  2. SERTRALINE [Concomitant]
     Dosage: UNK
  3. NORVASC [Suspect]
     Indication: HYPERTENSION
     Dosage: 10 MG, DAILY
     Route: 048
     Dates: start: 20070101
  4. ATENOLOL [Concomitant]
     Indication: HYPERTENSION
     Dosage: UNK
  5. HUMALOG [Concomitant]
     Indication: DIABETES MELLITUS
     Dosage: UNK
  6. CLONIDINE [Concomitant]
     Indication: HYPERTENSION
     Dosage: UNK
  7. LANTUS [Concomitant]
     Indication: DIABETES MELLITUS
     Dosage: UNK

REACTIONS (4)
  - DIABETES MELLITUS [None]
  - HYPERTENSION [None]
  - DYSPNOEA [None]
  - MYALGIA [None]
